FAERS Safety Report 25239473 (Version 1)
Quarter: 2025Q2

REPORT INFORMATION
  Report Type: Spontaneous
  Country: US (occurrence: None)
  Receive Date: 20250424
  Receipt Date: 20250424
  Transmission Date: 20250716
  Serious: Yes (Hospitalization, Disabling)
  Sender: FDA-CTU
  Company Number: None

PATIENT
  Age: 44 Year
  Sex: Male
  Weight: 81 kg

DRUGS (1)
  1. FINASTERIDE [Suspect]
     Active Substance: FINASTERIDE
     Indication: Alopecia
     Dates: start: 20191101, end: 20240918

REACTIONS (23)
  - Feeling of despair [None]
  - Fatigue [None]
  - Genital hypoaesthesia [None]
  - Dysuria [None]
  - Constipation [None]
  - Pollakiuria [None]
  - Testicular disorder [None]
  - Erectile dysfunction [None]
  - Loss of libido [None]
  - Anal hypoaesthesia [None]
  - Aphasia [None]
  - Brain fog [None]
  - Anxiety [None]
  - Hypohidrosis [None]
  - Renal impairment [None]
  - Nausea [None]
  - Skin odour abnormal [None]
  - Abdominal distension [None]
  - Insomnia [None]
  - Muscle spasms [None]
  - Anhedonia [None]
  - Amnesia [None]
  - Confusional state [None]

NARRATIVE: CASE EVENT DATE: 20240918
